FAERS Safety Report 16266671 (Version 2)
Quarter: 2019Q2

REPORT INFORMATION
  Report Type: Report from Study
  Country: US (occurrence: US)
  Receive Date: 20190502
  Receipt Date: 20190611
  Transmission Date: 20190711
  Serious: Yes (Hospitalization)
  Sender: FDA-Public Use
  Company Number: US-EISAI MEDICAL RESEARCH-EC-2019-055898

PATIENT
  Age: 62 Year
  Sex: Male
  Weight: 90.7 kg

DRUGS (7)
  1. PROTONIX [Concomitant]
     Active Substance: PANTOPRAZOLE SODIUM
  2. LENVIMA [Suspect]
     Active Substance: LENVATINIB
     Route: 048
     Dates: start: 2019
  3. VITAMIN D [Concomitant]
     Active Substance: VITAMIN D NOS
  4. ATENOLOL. [Concomitant]
     Active Substance: ATENOLOL
  5. PREDNISONE. [Concomitant]
     Active Substance: PREDNISONE
  6. LENVIMA [Suspect]
     Active Substance: LENVATINIB
     Indication: HEPATOCELLULAR CARCINOMA
     Route: 048
     Dates: start: 20190425, end: 2019
  7. AMLODIPINE [Concomitant]
     Active Substance: AMLODIPINE BESYLATE

REACTIONS (11)
  - Haematochezia [Unknown]
  - Epistaxis [Unknown]
  - Diarrhoea [Unknown]
  - Decreased appetite [Unknown]
  - Liver abscess [Unknown]
  - Fatigue [Unknown]
  - Gastrooesophageal reflux disease [Unknown]
  - Hypokalaemia [Unknown]
  - Hypomagnesaemia [Unknown]
  - Weight decreased [Unknown]
  - Flatulence [Unknown]

NARRATIVE: CASE EVENT DATE: 2019
